FAERS Safety Report 8834529 (Version 1)
Quarter: 2012Q4

REPORT INFORMATION
  Report Type: 
  Country: ZA (occurrence: ZA)
  Receive Date: 20121010
  Receipt Date: 20121010
  Transmission Date: 20130627
  Serious: Yes (Hospitalization)
  Sender: FDA-Public Use
  Company Number: ZA-ELI_LILLY_AND_COMPANY-ZA201210001896

PATIENT
  Age: 56 Year
  Sex: Male

DRUGS (4)
  1. HUMULIN NPH [Suspect]
     Indication: DIABETES MELLITUS
     Dosage: 10 u, each evening
     Route: 058
  2. HUMULIN NPH [Suspect]
     Dosage: 22 u, bid
     Route: 058
  3. LIPID MODIFYING AGENTS [Concomitant]
     Indication: BLOOD CHOLESTEROL
     Dosage: 1 DF, each evening
     Route: 048
  4. THYROID PREPARATIONS [Concomitant]
     Indication: HYPOTHYROIDISM
     Dosage: 1 DF, each morning
     Route: 048

REACTIONS (1)
  - Hyperglycaemic unconsciousness [Recovering/Resolving]
